FAERS Safety Report 20198694 (Version 1)
Quarter: 2021Q4

REPORT INFORMATION
  Report Type: Spontaneous
  Country: FR (occurrence: FR)
  Receive Date: 20211217
  Receipt Date: 20211217
  Transmission Date: 20220304
  Serious: Yes (Life-Threatening)
  Sender: FDA-Public Use
  Company Number: None

PATIENT
  Age: 73 Year
  Sex: Male

DRUGS (9)
  1. ETOPOSIDE PHOSPHATE [Suspect]
     Active Substance: ETOPOSIDE PHOSPHATE
     Indication: Testicular germ cell tumour
     Dosage: 170 MG A T1,T2,T3,T4,T5
     Route: 041
     Dates: start: 20210928
  2. BLEOMYCIN SULFATE [Suspect]
     Active Substance: BLEOMYCIN SULFATE
     Indication: Testicular germ cell tumour
     Dosage: 30 MG A T1, T8, T15
     Route: 041
     Dates: start: 20210928
  3. CISPLATIN [Suspect]
     Active Substance: CISPLATIN
     Indication: Testicular germ cell tumour
     Dosage: 36 MG A T1,T2,T3,T4,T5
     Route: 041
     Dates: start: 20210928
  4. OMEPRAZOLE [Concomitant]
     Active Substance: OMEPRAZOLE
     Route: 065
  5. KARDEGIC 75 mg, powder for oral solution in sachet [Concomitant]
     Route: 065
  6. LOPRESSOR 100 mg, scored film-coated tablet [Concomitant]
     Route: 065
  7. FLECAINE L.P. 50 mg, extended-release capsule [Concomitant]
     Route: 065
  8. ACETAMINOPHEN [Concomitant]
     Active Substance: ACETAMINOPHEN
     Route: 065
  9. ZYLORIC 100 mg, Tablet [Concomitant]
     Route: 065

REACTIONS (7)
  - Acute respiratory distress syndrome [Not Recovered/Not Resolved]
  - Interstitial lung disease [Not Recovered/Not Resolved]
  - Rhinitis [Unknown]
  - Laryngitis [Unknown]
  - Asthenia [Unknown]
  - Hypokalaemia [Unknown]
  - Mucosal inflammation [Unknown]

NARRATIVE: CASE EVENT DATE: 20211109
